FAERS Safety Report 5322288-5 (Version None)
Quarter: 2007Q2

REPORT INFORMATION
  Report Type: 
  Country: None (occurrence: None)
  Receive Date: 20070511
  Receipt Date: 20070503
  Transmission Date: 20071010
  Serious: Yes (Life-Threatening)
  Sender: FDA-Public Use
  Company Number: B0459281A

PATIENT
  Age: 65 Year
  Sex: Female

DRUGS (3)
  1. ZOFRAN [Suspect]
     Dosage: 8MG PER DAY
     Route: 048
     Dates: start: 20070217, end: 20070217
  2. HYZAAR [Suspect]
     Dosage: 1TAB PER DAY
     Route: 048
  3. CHEMOTHERAPY [Concomitant]
     Route: 065
     Dates: start: 20070214, end: 20070216

REACTIONS (2)
  - BLOOD PRESSURE DECREASED [None]
  - SYNCOPE [None]
